FAERS Safety Report 20065130 (Version 4)
Quarter: 2021Q4

REPORT INFORMATION
  Report Type: Spontaneous
  Country: US (occurrence: US)
  Receive Date: 20211113
  Receipt Date: 20211224
  Transmission Date: 20220304
  Serious: Yes (Hospitalization, Other)
  Sender: FDA-Public Use
  Company Number: US-UNITED THERAPEUTICS-UNT-2021-021110

PATIENT
  Sex: Female
  Weight: 69.388 kg

DRUGS (6)
  1. TYVASO [Suspect]
     Active Substance: TREPROSTINIL
     Indication: Pulmonary arterial hypertension
     Dosage: UNK
     Dates: start: 20210825
  2. TYVASO [Suspect]
     Active Substance: TREPROSTINIL
     Dosage: 54-72 ?G, QID
     Dates: start: 2021
  3. TYVASO [Suspect]
     Active Substance: TREPROSTINIL
     Dosage: 18-72 ?G, QID
     Dates: start: 2021
  4. TYVASO [Suspect]
     Active Substance: TREPROSTINIL
     Dosage: 18-72 ?G, QID
     Dates: start: 2021
  5. TYVASO [Suspect]
     Active Substance: TREPROSTINIL
     Dosage: 18 ?G (PER TREATMENT)
     Dates: start: 2021, end: 202112
  6. OPSUMIT [Concomitant]
     Active Substance: MACITENTAN
     Indication: Pulmonary hypertension
     Dosage: 10 MG, QD
     Route: 048

REACTIONS (10)
  - Dyspnoea [Unknown]
  - Asthenia [Unknown]
  - Pulmonary fibrosis [Unknown]
  - Pulmonary thrombosis [Unknown]
  - Thrombosis [Unknown]
  - Hypoxia [Unknown]
  - Diarrhoea [Unknown]
  - Chest discomfort [Unknown]
  - Dyspnoea exertional [Unknown]
  - Drug ineffective [Unknown]

NARRATIVE: CASE EVENT DATE: 20210101
